FAERS Safety Report 6966832-0 (Version None)
Quarter: 2010Q3

REPORT INFORMATION
  Report Type: 
  Country: None (occurrence: None)
  Receive Date: 20100906
  Receipt Date: 20100824
  Transmission Date: 20110219
  Serious: Yes (Hospitalization)
  Sender: FDA-Public Use
  Company Number: PHHO2010AU12946

PATIENT
  Sex: Male
  Weight: 68 kg

DRUGS (1)
  1. CERTICAN [Suspect]
     Indication: LUNG TRANSPLANT
     Dosage: 2 MG
     Route: 048
     Dates: start: 20080116

REACTIONS (1)
  - PNEUMONIA [None]
